FAERS Safety Report 14660336 (Version 2)
Quarter: 2018Q2

REPORT INFORMATION
  Report Type: Spontaneous
  Country: FR (occurrence: FR)
  Receive Date: 20180320
  Receipt Date: 20180423
  Transmission Date: 20180711
  Serious: Yes (Hospitalization)
  Sender: FDA-Public Use
  Company Number: FR-PFIZER INC-2018109190

PATIENT
  Age: 79 Year
  Sex: Female
  Weight: 55.9 kg

DRUGS (6)
  1. LEDERFOLINE [Suspect]
     Active Substance: LEUCOVORIN CALCIUM
     Indication: HAEMATOTOXICITY
     Dosage: UNK
     Route: 048
     Dates: start: 20170914
  2. IOMERON [Suspect]
     Active Substance: IOMEPROL
     Indication: ARTERIOGRAM CORONARY
     Dosage: UNK
     Route: 013
     Dates: start: 20170926
  3. HEPARIN [Suspect]
     Active Substance: HEPARIN SODIUM
     Indication: ARTERIOGRAM CORONARY
     Dosage: 1 MG, UNK
     Route: 058
     Dates: start: 20170926, end: 20170926
  4. CALCIPARINE [Suspect]
     Active Substance: HEPARIN CALCIUM
     Indication: TRANSCATHETER AORTIC VALVE IMPLANTATION
     Dosage: UNK
     Route: 058
     Dates: start: 20171007, end: 20171008
  5. RISORDAN /07346501/ [Suspect]
     Active Substance: ISOSORBIDE DINITRATE
     Indication: ARTERIOGRAM CORONARY
     Dosage: 1 MG, UNK
     Route: 013
     Dates: start: 20170926, end: 20170926
  6. BACTRIM [Suspect]
     Active Substance: SULFAMETHOXAZOLE\TRIMETHOPRIM
     Indication: PNEUMOCYSTIS JIROVECII PNEUMONIA
     Dosage: UNK
     Route: 048
     Dates: start: 20170914, end: 20171004

REACTIONS (1)
  - Rash maculo-papular [Recovered/Resolved]

NARRATIVE: CASE EVENT DATE: 20171008
